FAERS Safety Report 8625454-6 (Version None)
Quarter: 2012Q3

REPORT INFORMATION
  Report Type: 
  Country: None (occurrence: None)
  Receive Date: 20120827
  Receipt Date: 20120822
  Transmission Date: 20120928
  Serious: Yes (Hospitalization, Other)
  Sender: FDA-Public Use
  Company Number: MX-ABBOTT-12P-107-0892360-00

PATIENT
  Sex: Female
  Weight: 47 kg

DRUGS (7)
  1. METHOTREXATE [Concomitant]
     Indication: PRODUCT USED FOR UNKNOWN INDICATION
     Dosage: 3 TAB ON SAT AND 3 TAB ON SUNDAY: WEEKLY
     Dates: start: 20110401, end: 20110901
  2. VALIFOL [Concomitant]
     Indication: PULMONARY TUBERCULOSIS
     Route: 048
     Dates: start: 20120601
  3. PREDNISONE TAB [Concomitant]
     Indication: SARCOIDOSIS
     Route: 048
     Dates: start: 20120521
  4. LYRICA [Concomitant]
     Indication: MUSCULOSKELETAL CHEST PAIN
     Route: 048
     Dates: start: 20120101
  5. REFINA [Concomitant]
     Indication: PULMONARY TUBERCULOSIS
     Route: 048
     Dates: start: 20120301, end: 20120601
  6. HUMIRA [Suspect]
     Indication: SPONDYLITIS
     Route: 058
     Dates: start: 20110601, end: 20111019
  7. RIFATER [Concomitant]
     Indication: PULMONARY TUBERCULOSIS
     Route: 048
     Dates: start: 20120101, end: 20120301

REACTIONS (6)
  - NERVE INJURY [None]
  - PULMONARY TUBERCULOSIS [None]
  - LUNG DISORDER [None]
  - MALAISE [None]
  - SARCOIDOSIS [None]
  - HERPES VIRUS INFECTION [None]
